FAERS Safety Report 10086820 (Version 4)
Quarter: 2014Q4

REPORT INFORMATION
  Report Type: Spontaneous
  Country: US (occurrence: US)
  Receive Date: 20140418
  Receipt Date: 20141119
  Transmission Date: 20150528
  Serious: Yes (Hospitalization, Other)
  Sender: FDA-Public Use
  Company Number: US-GLAXOSMITHKLINE-A1069852A

PATIENT
  Age: 51 Year
  Sex: Female

DRUGS (5)
  1. REVATIO [Concomitant]
     Active Substance: SILDENAFIL CITRATE
  2. FLOLAN [Suspect]
     Active Substance: EPOPROSTENOL SODIUM
     Indication: COR PULMONALE CHRONIC
     Dosage: DOSE: 9 NG/KG/MINCONCENTRATION: 30,000 NG/MLVIAL STRENGTH: 1.5 MG
     Route: 042
     Dates: start: 20010119
  3. COUMADIN [Concomitant]
     Active Substance: WARFARIN SODIUM
  4. FLOLAN [Suspect]
     Active Substance: EPOPROSTENOL SODIUM
     Dosage: 20 NG/KG/MIN
  5. LETAIRIS [Concomitant]
     Active Substance: AMBRISENTAN

REACTIONS (6)
  - Renal failure [Unknown]
  - Emergency care examination [Unknown]
  - Infection [Unknown]
  - Renal disorder [Unknown]
  - Fluid retention [Unknown]
  - Fluid overload [Unknown]

NARRATIVE: CASE EVENT DATE: 20140317
